FAERS Safety Report 9748898 (Version 2)
Quarter: 2013Q4

REPORT INFORMATION
  Report Type: Spontaneous
  Country: US (occurrence: US)
  Receive Date: 20131212
  Receipt Date: 20131212
  Transmission Date: 20140711
  Serious: No
  Sender: FDA-Public Use
  Company Number: US-INCYTE CORPORATION-2013IN001051

PATIENT
  Age: 65 Year
  Sex: Female
  Weight: 65.31 kg

DRUGS (2)
  1. JAKAFI [Suspect]
     Dosage: 7.5 MG, BID
     Route: 048
     Dates: start: 20121203
  2. EXJADE [Suspect]
     Dosage: 500 MG TABLET

REACTIONS (2)
  - Weight increased [Unknown]
  - Medication error [Unknown]
